FAERS Safety Report 21947863 (Version 2)
Quarter: 2023Q1

REPORT INFORMATION
  Report Type: Spontaneous
  Country: IT (occurrence: None)
  Receive Date: 20230203
  Receipt Date: 20230308
  Transmission Date: 20230417
  Serious: Yes (Hospitalization)
  Sender: FDA-Public Use
  Company Number: None

PATIENT
  Age: 63 Year
  Sex: Female
  Weight: 49 kg

DRUGS (5)
  1. STALEVO [Suspect]
     Active Substance: CARBIDOPA\ENTACAPONE\LEVODOPA
     Indication: Parkinson^s disease
     Dosage: DOSE: 100 MG
     Route: 065
  2. STALEVO [Suspect]
     Active Substance: CARBIDOPA\ENTACAPONE\LEVODOPA
     Dosage: PATIENT IN TREATMENT WITH 6 TABLET DAILY. IN THE MORNING OF 22-JAN-2023 TOOK 2 TABLET MORE THAN USUA
     Route: 065
     Dates: start: 20230122
  3. STALEVO [Suspect]
     Active Substance: CARBIDOPA\ENTACAPONE\LEVODOPA
     Dosage: DOSE REDUCED
     Route: 065
  4. ONGENTYS [Suspect]
     Active Substance: OPICAPONE
     Indication: Parkinson^s disease
     Dosage: PATIENT IN TREATMENT WITH ONE CAPSULE AT NIGHT.
     Route: 065
  5. ONGENTYS [Suspect]
     Active Substance: OPICAPONE
     Dosage: PATIENT IN TREATMENT WITH ONE CAPSULE AT NIGHT. IN THE MORNING OF 22-JAN TOOK 5 CAPSULES
     Route: 065
     Dates: start: 20230122

REACTIONS (5)
  - Intentional overdose [Unknown]
  - Dyskinesia [Recovered/Resolved]
  - Dysarthria [Recovered/Resolved]
  - Aphasia [Recovered/Resolved]
  - Depressed level of consciousness [Recovered/Resolved]

NARRATIVE: CASE EVENT DATE: 20230122
